FAERS Safety Report 17318175 (Version 2)
Quarter: 2020Q1

REPORT INFORMATION
  Report Type: Spontaneous
  Country: HU (occurrence: HU)
  Receive Date: 20200124
  Receipt Date: 20200312
  Transmission Date: 20200409
  Serious: Yes (Other)
  Sender: FDA-Public Use
  Company Number: HU-MYLANLABS-2020M1007594

PATIENT

DRUGS (4)
  1. TOPIRAMATE. [Concomitant]
     Active Substance: TOPIRAMATE
     Indication: JUVENILE MYOCLONIC EPILEPSY
     Dosage: 150 MILLIGRAM, QD, 150 MG, DAILY
     Dates: start: 201809
  2. LAMOTRIGINE. [Suspect]
     Active Substance: LAMOTRIGINE
     Indication: EPILEPSY
     Dosage: UNK
     Route: 065
     Dates: start: 201812
  3. VALPROAT [Concomitant]
     Active Substance: VALPROATE SODIUM
     Indication: JUVENILE MYOCLONIC EPILEPSY
     Dosage: 600 MILLIGRAM, TOTAL, UNK, 600MG TOTAL DOSE
  4. LAMOTRIGINE. [Suspect]
     Active Substance: LAMOTRIGINE
     Indication: JUVENILE MYOCLONIC EPILEPSY
     Dosage: UNK
     Route: 065

REACTIONS (10)
  - Rash maculo-papular [Unknown]
  - Eosinophil count increased [Unknown]
  - Liver function test increased [Unknown]
  - Hepatosplenomegaly [Unknown]
  - Nausea [Unknown]
  - Pleurisy [Unknown]
  - Drug reaction with eosinophilia and systemic symptoms [Unknown]
  - Anaemia [Unknown]
  - Encephalitis autoimmune [Unknown]
  - Pyrexia [Unknown]
